FAERS Safety Report 9486598 (Version 1)
Quarter: 2013Q3

REPORT INFORMATION
  Report Type: Spontaneous
  Country: ES (occurrence: ES)
  Receive Date: 20130829
  Receipt Date: 20130829
  Transmission Date: 20140515
  Serious: Yes (Hospitalization)
  Sender: FDA-Public Use
  Company Number: PHHY2013ES093737

PATIENT
  Age: 63 Year
  Sex: Male

DRUGS (3)
  1. AFINITOR [Suspect]
     Indication: SMALL INTESTINE CARCINOMA
     Dosage: 10 MG, QD
     Route: 048
     Dates: start: 20130424, end: 20130714
  2. AFINITOR [Suspect]
     Indication: OFF LABEL USE
  3. SANDOSTATIN LAR [Suspect]
     Indication: SMALL INTESTINE CARCINOMA
     Dosage: 30 MG, UNK
     Route: 030
     Dates: start: 201304

REACTIONS (2)
  - Lung infiltration [Recovered/Resolved]
  - Dyspnoea [Recovered/Resolved]
